FAERS Safety Report 13989277 (Version 1)
Quarter: 2017Q3

REPORT INFORMATION
  Report Type: Spontaneous
  Country: BR (occurrence: BR)
  Receive Date: 20170920
  Receipt Date: 20170920
  Transmission Date: 20171128
  Serious: Yes (Other)
  Sender: FDA-Public Use
  Company Number: BR-AMGEN-BRASP2016123517

PATIENT
  Age: 56 Year
  Sex: Female

DRUGS (1)
  1. ENBREL [Suspect]
     Active Substance: ETANERCEPT
     Indication: PRODUCT USED FOR UNKNOWN INDICATION
     Dosage: UNK
     Route: 065
     Dates: start: 201608

REACTIONS (10)
  - Cough [Unknown]
  - Injection site discolouration [Unknown]
  - Drug dispensing error [Unknown]
  - Erythema [Unknown]
  - Injection site mass [Unknown]
  - Injection site erythema [Unknown]
  - Feeling hot [Unknown]
  - Pneumonitis chemical [Unknown]
  - Drug hypersensitivity [Unknown]
  - Induration [Unknown]

NARRATIVE: CASE EVENT DATE: 20160927
